FAERS Safety Report 15646725 (Version 1)
Quarter: 2018Q4

REPORT INFORMATION
  Report Type: Spontaneous
  Country: US (occurrence: US)
  Receive Date: 20181121
  Receipt Date: 20181121
  Transmission Date: 20190205
  Serious: Yes (Other)
  Sender: FDA-Public Use
  Company Number: None

PATIENT
  Age: 34 Year
  Sex: Female
  Weight: 72.57 kg

DRUGS (1)
  1. BUPRENORPHINE/NALOXONE, 8 MG [Suspect]
     Active Substance: BUPRENORPHINE\NALOXONE
     Indication: DRUG DEPENDENCE
     Dates: start: 20180612, end: 20181121

REACTIONS (2)
  - Product solubility abnormal [None]
  - Drug ineffective [None]

NARRATIVE: CASE EVENT DATE: 20181121
